FAERS Safety Report 10072757 (Version 1)
Quarter: 2014Q2

REPORT INFORMATION
  Report Type: Spontaneous
  Country: US (occurrence: US)
  Receive Date: 20140411
  Receipt Date: 20140411
  Transmission Date: 20141212
  Serious: No
  Sender: FDA-Public Use
  Company Number: US-PFIZER INC-2014100977

PATIENT
  Age: 51 Year
  Sex: Female

DRUGS (14)
  1. INDERAL [Suspect]
     Indication: FIBROMYALGIA
     Dosage: UNK
  2. INDERAL [Suspect]
     Indication: MIGRAINE
  3. MEDROL [Suspect]
     Indication: FIBROMYALGIA
     Dosage: UNK
  4. MEDROL [Suspect]
     Indication: MIGRAINE
  5. TRAMADOL HCL [Suspect]
     Indication: FIBROMYALGIA
     Dosage: UNK
  6. TRAMADOL HCL [Suspect]
     Indication: MIGRAINE
  7. TOPAMAX [Suspect]
     Indication: FIBROMYALGIA
     Dosage: UNK
  8. TOPAMAX [Suspect]
     Indication: MIGRAINE
  9. FLUOXETINE [Suspect]
     Indication: FIBROMYALGIA
     Dosage: UNK
  10. FLUOXETINE [Suspect]
     Indication: MIGRAINE
  11. FLOMAX [Suspect]
     Indication: FIBROMYALGIA
     Dosage: UNK
  12. FLOMAX [Suspect]
     Indication: MIGRAINE
  13. BOTOX [Suspect]
     Indication: FIBROMYALGIA
     Dosage: UNK
  14. BOTOX [Suspect]
     Indication: MIGRAINE

REACTIONS (1)
  - Drug ineffective for unapproved indication [Unknown]
